FAERS Safety Report 16425027 (Version 1)
Quarter: 2019Q2

REPORT INFORMATION
  Report Type: Spontaneous
  Country: US (occurrence: US)
  Receive Date: 20190613
  Receipt Date: 20190613
  Transmission Date: 20190711
  Serious: Yes (Life-Threatening, Other)
  Sender: FDA-Public Use
  Company Number: US-HIKMA PHARMACEUTICALS USA INC.-US-H14001-19-03866

PATIENT
  Sex: Male

DRUGS (5)
  1. EVEROLIMUS. [Suspect]
     Active Substance: EVEROLIMUS
     Indication: STENT PLACEMENT
  2. SIROLIMUS. [Suspect]
     Active Substance: SIROLIMUS
     Indication: STENT PLACEMENT
  3. SIROLIMUS. [Suspect]
     Active Substance: SIROLIMUS
     Indication: CARDIAC DISORDER
     Route: 065
     Dates: start: 2014
  4. EVEROLIMUS. [Suspect]
     Active Substance: EVEROLIMUS
     Indication: CARDIAC DISORDER
     Route: 065
     Dates: start: 201511
  5. METHOTREXATE. [Suspect]
     Active Substance: METHOTREXATE
     Indication: PRODUCT USED FOR UNKNOWN INDICATION
     Route: 065
     Dates: start: 201511

REACTIONS (3)
  - Vascular stent stenosis [Unknown]
  - Chest pain [Unknown]
  - Drug hypersensitivity [Unknown]

NARRATIVE: CASE EVENT DATE: 201703
